FAERS Safety Report 5354577-2 (Version None)
Quarter: 2007Q2

REPORT INFORMATION
  Report Type: 
  Country: None (occurrence: None)
  Receive Date: 20070612
  Receipt Date: 20070604
  Transmission Date: 20071010
  Serious: Yes (Hospitalization, Disabling)
  Sender: FDA-Public Use
  Company Number: US-GENENTECH-242138

PATIENT
  Sex: Female

DRUGS (5)
  1. RITUXAN [Suspect]
     Indication: ARTHRITIS
     Route: 042
     Dates: start: 20070508
  2. METHOTREXATE [Concomitant]
     Indication: POLYARTHRITIS
     Dosage: 5 MG, 1/WEEK
  3. CELLCEPT [Concomitant]
     Indication: POLYARTHRITIS
     Dosage: 1 G, BID
  4. HYDROXYCHLOROQUINE SULFATE [Concomitant]
     Indication: POLYARTHRITIS
     Dosage: 200 MG, BID
  5. PREDNISONE TAB [Concomitant]
     Indication: POLYARTHRITIS
     Dosage: 5 MG, QD
     Dates: start: 20070327

REACTIONS (2)
  - PNEUMONIA [None]
  - RESPIRATORY SYNCYTIAL VIRUS INFECTION [None]
